FAERS Safety Report 9470415 (Version 1)
Quarter: 2013Q3

REPORT INFORMATION
  Report Type: Spontaneous
  Country: US (occurrence: None)
  Receive Date: 20130820
  Receipt Date: 20130820
  Transmission Date: 20140515
  Serious: Yes (Other)
  Sender: FDA-Public Use
  Company Number: None

PATIENT
  Age: 54 Year
  Sex: Female
  Weight: 52.16 kg

DRUGS (1)
  1. RECLAST [Suspect]
     Indication: OSTEOPOROSIS
     Dosage: INTO A VEIN?ONE TIME LASTS A YEAR
     Route: 042

REACTIONS (19)
  - Dizziness [None]
  - Nausea [None]
  - Infusion related reaction [None]
  - Gait disturbance [None]
  - Quality of life decreased [None]
  - Arthralgia [None]
  - Myalgia [None]
  - Bone pain [None]
  - Musculoskeletal stiffness [None]
  - Fatigue [None]
  - Insomnia [None]
  - Rash pruritic [None]
  - Rash generalised [None]
  - Blood pressure decreased [None]
  - Vomiting [None]
  - Confusional state [None]
  - Influenza like illness [None]
  - Pain in jaw [None]
  - Migraine [None]
